FAERS Safety Report 25220926 (Version 1)
Quarter: 2025Q2

REPORT INFORMATION
  Report Type: Spontaneous
  Country: US (occurrence: None)
  Receive Date: 20250420
  Receipt Date: 20250420
  Transmission Date: 20250717
  Serious: Yes (Hospitalization, Disabling, Other)
  Sender: FDA-CTU
  Company Number: None

PATIENT
  Age: 54 Year
  Sex: Female
  Weight: 108.45 kg

DRUGS (5)
  1. NITROFURANTOIN [Suspect]
     Active Substance: NITROFURANTOIN
     Indication: Urinary tract infection
     Dates: start: 20240421, end: 20241227
  2. PREDNISONE [Concomitant]
     Active Substance: PREDNISONE
  3. OXYGEN [Concomitant]
     Active Substance: OXYGEN
  4. PRAVASTATIN [Concomitant]
     Active Substance: PRAVASTATIN
  5. OXYCODONE [Concomitant]
     Active Substance: OXYCODONE

REACTIONS (4)
  - Pulmonary toxicity [None]
  - Respiratory disorder [None]
  - Weight increased [None]
  - Diabetes mellitus inadequate control [None]

NARRATIVE: CASE EVENT DATE: 20240814
